FAERS Safety Report 21920359 (Version 7)
Quarter: 2023Q1

REPORT INFORMATION
  Report Type: Report from Study
  Country: CO (occurrence: CO)
  Receive Date: 20230127
  Receipt Date: 20230331
  Transmission Date: 20230418
  Serious: Yes (Hospitalization)
  Sender: FDA-Public Use
  Company Number: CO-002147023-NVSC2023CO010531

PATIENT
  Sex: Female

DRUGS (1)
  1. COSENTYX [Suspect]
     Active Substance: SECUKINUMAB
     Indication: Psoriasis
     Dosage: 300 MG, QMO
     Route: 058

REACTIONS (8)
  - Illness [Unknown]
  - Malaise [Unknown]
  - Psoriasis [Unknown]
  - Stress [Unknown]
  - Influenza [Unknown]
  - Dizziness [Unknown]
  - Cough [Unknown]
  - Viral infection [Unknown]
